FAERS Safety Report 9644321 (Version 3)
Quarter: 2013Q4

REPORT INFORMATION
  Report Type: Spontaneous
  Country: US (occurrence: US)
  Receive Date: 20131025
  Receipt Date: 20131205
  Transmission Date: 20140711
  Serious: Yes (Hospitalization)
  Sender: FDA-Public Use
  Company Number: US-BIOGENIDEC-2013BI100482

PATIENT
  Age: 61 Year
  Sex: Male

DRUGS (8)
  1. TYSABRI [Suspect]
     Indication: MULTIPLE SCLEROSIS
     Route: 042
     Dates: start: 20130514, end: 20130807
  2. ASPIRIN [Concomitant]
  3. CHOLECALCIFEROL [Concomitant]
  4. COENZYME Q [Concomitant]
  5. DONEPEZIL [Concomitant]
  6. GABAPENTIN [Concomitant]
  7. MODAFANIL [Concomitant]
  8. OMEGA-3 [Concomitant]

REACTIONS (5)
  - Memory impairment [Unknown]
  - Fall [Recovered/Resolved]
  - Tremor [Unknown]
  - Asthenia [Unknown]
  - Weight decreased [Not Recovered/Not Resolved]
